FAERS Safety Report 8947282 (Version 1)
Quarter: 2012Q4

REPORT INFORMATION
  Report Type: Report from Study
  Country: FI (occurrence: FI)
  Receive Date: 20121205
  Receipt Date: 20121205
  Transmission Date: 20130627
  Serious: Yes (Other)
  Sender: FDA-Public Use
  Company Number: FI-ROCHE-1162563

PATIENT

DRUGS (3)
  1. CAPECITABINE [Suspect]
     Indication: GASTROINTESTINAL CARCINOMA
     Route: 065
  2. OXALIPLATIN [Suspect]
     Indication: GASTROINTESTINAL CARCINOMA
     Route: 065
  3. BEVACIZUMAB [Suspect]
     Indication: GASTROINTESTINAL CARCINOMA
     Route: 065

REACTIONS (2)
  - Disease progression [Unknown]
  - Ileus [Unknown]
